FAERS Safety Report 22525339 (Version 14)
Quarter: 2025Q3

REPORT INFORMATION
  Report Type: Report from Study
  Country: US (occurrence: US)
  Receive Date: 20230606
  Receipt Date: 20250924
  Transmission Date: 20251020
  Serious: Yes (Hospitalization, Other)
  Sender: TAKEDA
  Company Number: US-TAKEDA-2023TUS055371

PATIENT
  Sex: Female
  Weight: 59 kg

DRUGS (33)
  1. HUMAN IMMUNOGLOBULIN G [Suspect]
     Active Substance: HUMAN IMMUNOGLOBULIN G
     Indication: Immunodeficiency common variable
     Dosage: 12 GRAM, 1/WEEK
  2. HUMAN IMMUNOGLOBULIN G [Suspect]
     Active Substance: HUMAN IMMUNOGLOBULIN G
  3. BENADRYL [Suspect]
     Active Substance: DIPHENHYDRAMINE HYDROCHLORIDE
     Indication: Product used for unknown indication
  4. DIPHENHYDRAMINE [Concomitant]
     Active Substance: DIPHENHYDRAMINE
  5. FUROSEMIDE [Concomitant]
     Active Substance: FUROSEMIDE
  6. ALBUTEROL SULFATE [Concomitant]
     Active Substance: ALBUTEROL SULFATE
  7. CARVEDILOL [Concomitant]
     Active Substance: CARVEDILOL
  8. PFIZER-BIONTECH COVID-19 VACCINE [Concomitant]
     Active Substance: TOZINAMERAN
  9. EPINEPHRINE [Concomitant]
     Active Substance: EPINEPHRINE
  10. VITAMIN D3 [Concomitant]
     Active Substance: CHOLECALCIFEROL
  11. BREO ELLIPTA [Concomitant]
     Active Substance: FLUTICASONE FUROATE\VILANTEROL TRIFENATATE
  12. PROLIA [Concomitant]
     Active Substance: DENOSUMAB
  13. ROSUVASTATIN CALCIUM [Concomitant]
     Active Substance: ROSUVASTATIN CALCIUM
  14. PREMARIN [Concomitant]
     Active Substance: ESTROGENS, CONJUGATED
  15. OMEPRAZOLE [Concomitant]
     Active Substance: OMEPRAZOLE
  16. BYSTOLIC [Concomitant]
     Active Substance: NEBIVOLOL HYDROCHLORIDE
  17. SODIUM CHLORIDE [Concomitant]
     Active Substance: SODIUM CHLORIDE
  18. IPRATROPIUM BROMIDE [Concomitant]
     Active Substance: IPRATROPIUM BROMIDE
  19. HIZENTRA [Concomitant]
     Active Substance: HUMAN IMMUNOGLOBULIN G
  20. ACETAMINOPHEN [Concomitant]
     Active Substance: ACETAMINOPHEN
  21. GABAPENTIN [Concomitant]
     Active Substance: GABAPENTIN
  22. CALCIUM CARBONATE [Concomitant]
     Active Substance: CALCIUM CARBONATE
  23. VALSARTAN [Concomitant]
     Active Substance: VALSARTAN
  24. Myrbetriq H [Concomitant]
  25. LEVOTHYROXINE [Concomitant]
     Active Substance: LEVOTHYROXINE
  26. LIDOCAINE [Concomitant]
     Active Substance: LIDOCAINE
  27. BACLOFEN [Concomitant]
     Active Substance: BACLOFEN
  28. DOXAZOSIN MESYLATE [Concomitant]
     Active Substance: DOXAZOSIN MESYLATE
  29. DIPHENHYDRAMINE HYDROCHLORIDE [Concomitant]
     Active Substance: DIPHENHYDRAMINE HYDROCHLORIDE
  30. Lmx [Concomitant]
  31. PERCOCET [Concomitant]
     Active Substance: ACETAMINOPHEN\OXYCODONE HYDROCHLORIDE
  32. AZITHROMYCIN [Concomitant]
     Active Substance: AZITHROMYCIN
  33. ALBUTEROL SULFATE [Concomitant]
     Active Substance: ALBUTEROL SULFATE

REACTIONS (23)
  - Gastroenteritis viral [Unknown]
  - Pneumonia [Unknown]
  - Food poisoning [Unknown]
  - Gastrointestinal disorder [Unknown]
  - Pneumonia viral [Unknown]
  - Arthritis [Unknown]
  - Folliculitis [Unknown]
  - Fungal skin infection [Unknown]
  - Urinary tract infection [Unknown]
  - Tooth abscess [Unknown]
  - Anaesthetic complication [Unknown]
  - Conjunctivitis viral [Unknown]
  - Poor venous access [Unknown]
  - Infusion site discharge [Unknown]
  - Constipation [Unknown]
  - Inappropriate schedule of product administration [Unknown]
  - Upper respiratory tract infection [Unknown]
  - Oral candidiasis [Unknown]
  - Somnolence [Unknown]
  - Rash [Unknown]
  - Infusion site pruritus [Not Recovered/Not Resolved]
  - Infusion site pain [Not Recovered/Not Resolved]
  - Pruritus [Unknown]
